FAERS Safety Report 9033567 (Version 1)
Quarter: 2013Q1

REPORT INFORMATION
  Report Type: Spontaneous
  Country: US (occurrence: US)
  Receive Date: 20130128
  Receipt Date: 20130128
  Transmission Date: 20140127
  Serious: Yes (Death)
  Sender: FDA-Public Use
  Company Number: PHHY2013US007293

PATIENT
  Age: 86 Year
  Sex: Male

DRUGS (8)
  1. METOPROLOL [Suspect]
  2. METFORMIN [Suspect]
  3. POTASSIUM CHLORIDE [Suspect]
  4. VERAPAMIL [Suspect]
  5. GLYBURIDE [Suspect]
  6. FUROSEMIDE [Suspect]
  7. OMEPRAZOLE [Suspect]
  8. PRAZOSIN [Suspect]

REACTIONS (1)
  - Medication error [Fatal]
